FAERS Safety Report 15016307 (Version 1)
Quarter: 2018Q2

REPORT INFORMATION
  Report Type: Spontaneous
  Country: US (occurrence: US)
  Receive Date: 20180615
  Receipt Date: 20180615
  Transmission Date: 20180711
  Serious: No
  Sender: FDA-Public Use
  Company Number: US-ALLERGAN-1819379US

PATIENT
  Sex: Female
  Weight: 61.22 kg

DRUGS (1)
  1. ACZONE [Suspect]
     Active Substance: DAPSONE
     Indication: ACNE
     Dosage: UNK UNK, QAM
     Route: 061
     Dates: start: 20180227, end: 20180302

REACTIONS (2)
  - Application site rash [Recovered/Resolved]
  - Drug hypersensitivity [Recovered/Resolved]
